FAERS Safety Report 15758632 (Version 4)
Quarter: 2019Q3

REPORT INFORMATION
  Report Type: Report from Study
  Country: DE (occurrence: DE)
  Receive Date: 20181225
  Receipt Date: 20190816
  Transmission Date: 20191004
  Serious: Yes (Hospitalization, Other)
  Sender: FDA-Public Use
  Company Number: PHHY2018DE191265

PATIENT
  Age: 75 Year
  Sex: Male
  Weight: 78 kg

DRUGS (11)
  1. TAFINLAR [Suspect]
     Active Substance: DABRAFENIB MESYLATE
     Indication: BRAF V600E MUTATION POSITIVE
     Dosage: 75 MG, BID
     Route: 048
     Dates: start: 20181101, end: 20181108
  2. TAFINLAR [Suspect]
     Active Substance: DABRAFENIB MESYLATE
     Indication: METASTATIC MALIGNANT MELANOMA
     Dosage: 150 MG, BID
     Route: 048
     Dates: start: 20180827, end: 20180916
  3. TRAMETINIB [Suspect]
     Active Substance: TRAMETINIB
     Dosage: 0.5 MG, QD
     Route: 048
     Dates: start: 20190808
  4. COBIMETINIB. [Suspect]
     Active Substance: COBIMETINIB
     Indication: MALIGNANT MELANOMA
     Dosage: 20 MG, 3 TIMES EVERY 3 WEEKS
     Route: 048
     Dates: start: 20180918, end: 20181017
  5. TAFINLAR [Suspect]
     Active Substance: DABRAFENIB MESYLATE
     Dosage: 150 MG, BID
     Route: 048
     Dates: start: 20181129
  6. TRAMETINIB [Suspect]
     Active Substance: TRAMETINIB
     Indication: METASTATIC MALIGNANT MELANOMA
     Dosage: 2 MG, QD
     Route: 048
     Dates: start: 20180827, end: 20180916
  7. TAFINLAR [Suspect]
     Active Substance: DABRAFENIB MESYLATE
     Dosage: 150 MG, BID
     Route: 048
     Dates: start: 20190808
  8. TRAMETINIB [Suspect]
     Active Substance: TRAMETINIB
     Indication: BRAF V600E MUTATION POSITIVE
     Dosage: 0.5 MG, QD
     Route: 048
     Dates: start: 20181129
  9. VEMURAFENIB. [Suspect]
     Active Substance: VEMURAFENIB
     Indication: MALIGNANT MELANOMA
     Dosage: 8 DF, QD
     Route: 048
     Dates: start: 20180918, end: 20181017
  10. TAFINLAR [Suspect]
     Active Substance: DABRAFENIB MESYLATE
     Dosage: 150 MG, BID
     Route: 048
     Dates: start: 20181108
  11. SOOLANTRA [Concomitant]
     Active Substance: IVERMECTIN
     Indication: PRODUCT USED FOR UNKNOWN INDICATION
     Dosage: 1 MG, QD
     Route: 061
     Dates: start: 20180509

REACTIONS (11)
  - Extrasystoles [Recovered/Resolved]
  - Pruritus [Not Recovered/Not Resolved]
  - Rosacea [Unknown]
  - Nausea [Recovered/Resolved]
  - Circulatory collapse [Recovered/Resolved]
  - Dyspnoea exertional [Not Recovered/Not Resolved]
  - Drug reaction with eosinophilia and systemic symptoms [Recovered/Resolved]
  - Palpitations [Recovered/Resolved]
  - Fatigue [Recovering/Resolving]
  - Asthenia [Recovered/Resolved]
  - Epstein-Barr virus infection [Not Recovered/Not Resolved]

NARRATIVE: CASE EVENT DATE: 20180827
